FAERS Safety Report 24699785 (Version 1)
Quarter: 2024Q4

REPORT INFORMATION
  Report Type: Spontaneous
  Country: US (occurrence: US)
  Receive Date: 20241205
  Receipt Date: 20241205
  Transmission Date: 20250114
  Serious: Yes (Other)
  Sender: APOTEX
  Company Number: US-APOTEX-2024AP019257

PATIENT
  Age: 24 Year
  Sex: Female

DRUGS (1)
  1. OLANZAPINE [Suspect]
     Active Substance: OLANZAPINE
     Indication: Post-traumatic stress disorder
     Dosage: UNK
     Route: 065
     Dates: start: 202303

REACTIONS (3)
  - Cholestasis [Unknown]
  - Drug-induced liver injury [Recovering/Resolving]
  - Hepatic steatosis [Unknown]
